FAERS Safety Report 21468450 (Version 3)
Quarter: 2022Q4

REPORT INFORMATION
  Report Type: Spontaneous
  Country: US (occurrence: US)
  Receive Date: 20221017
  Receipt Date: 20221124
  Transmission Date: 20230113
  Serious: Yes (Death, Other)
  Sender: FDA-Public Use
  Company Number: US-AVEO ONCOLOGY-2022-AVEO-US000461

PATIENT

DRUGS (1)
  1. FOTIVDA [Suspect]
     Active Substance: TIVOZANIB HYDROCHLORIDE
     Indication: Renal cell carcinoma
     Dosage: 1.34 MG, DAILY FOR 21 DAYS WITH 7 DAYS OFF (28-DAY CYCLE)
     Route: 048
     Dates: start: 20220702, end: 2022

REACTIONS (7)
  - Death [Fatal]
  - Rib fracture [Unknown]
  - Adverse drug reaction [Unknown]
  - Pain [Unknown]
  - Haemoptysis [Unknown]
  - Infection [Unknown]
  - Metastases to bone [Unknown]

NARRATIVE: CASE EVENT DATE: 20221001
